FAERS Safety Report 25140703 (Version 1)
Quarter: 2025Q1

REPORT INFORMATION
  Report Type: Spontaneous
  Country: US (occurrence: US)
  Receive Date: 20250331
  Receipt Date: 20250331
  Transmission Date: 20250409
  Serious: Yes (Other)
  Sender: ROCHE
  Company Number: US-ROCHE-10000244758

PATIENT
  Sex: Female

DRUGS (10)
  1. XOLAIR [Suspect]
     Active Substance: OMALIZUMAB
     Indication: Idiopathic urticaria
     Dosage: STRENGTH: 150 MG/ML
     Route: 058
     Dates: start: 20250116
  2. XOLAIR [Suspect]
     Active Substance: OMALIZUMAB
  3. CALCIUM [Concomitant]
     Active Substance: CALCIUM
  4. COD LIVER OIL [Concomitant]
     Active Substance: COD LIVER OIL
  5. FOLIC ACID [Concomitant]
     Active Substance: FOLIC ACID
  6. IBUPROFEN [Concomitant]
     Active Substance: IBUPROFEN
  7. MAGNESIUM [Concomitant]
     Active Substance: MAGNESIUM
  8. METHIMAZOLE [Concomitant]
     Active Substance: METHIMAZOLE
  9. VITAMINS [Concomitant]
     Active Substance: VITAMINS
  10. PREDNISONE [Concomitant]
     Active Substance: PREDNISONE

REACTIONS (2)
  - Graves^ disease [Unknown]
  - Thyroid disorder [Unknown]
